FAERS Safety Report 20647840 (Version 1)
Quarter: 2022Q1

REPORT INFORMATION
  Report Type: Spontaneous
  Country: CA (occurrence: None)
  Receive Date: 20220329
  Receipt Date: 20220329
  Transmission Date: 20220423
  Serious: Yes (Hospitalization)
  Sender: FDA-Public Use
  Company Number: CA-ROCHE-3058001

PATIENT
  Age: 73 Year
  Sex: Male

DRUGS (13)
  1. RITUXIMAB [Suspect]
     Active Substance: RITUXIMAB
     Indication: Glomerulonephritis membranous
     Route: 041
  2. ACETAMINOPHEN [Concomitant]
     Active Substance: ACETAMINOPHEN
  3. AMLODIPINE [Concomitant]
     Active Substance: AMLODIPINE BESYLATE
  4. ATORVASTATIN CALCIUM [Concomitant]
     Active Substance: ATORVASTATIN CALCIUM
  5. COLCHICINE [Concomitant]
     Active Substance: COLCHICINE
  6. DAPSONE [Concomitant]
     Active Substance: DAPSONE
  7. EZETIMIBE [Concomitant]
     Active Substance: EZETIMIBE
  8. FUROSEMIDE [Concomitant]
     Active Substance: FUROSEMIDE
  9. INDAPAMIDE [Concomitant]
     Active Substance: INDAPAMIDE
  10. METHOCARBAMOL [Concomitant]
     Active Substance: METHOCARBAMOL
  11. METHYLPREDNISOLONE [Concomitant]
     Active Substance: METHYLPREDNISOLONE
  12. PERINDOPRIL [Concomitant]
     Active Substance: PERINDOPRIL
  13. SEPTRA [Concomitant]
     Active Substance: SULFAMETHOXAZOLE\TRIMETHOPRIM

REACTIONS (8)
  - Asthenia [Recovered/Resolved]
  - Flushing [Recovered/Resolved]
  - Hypersensitivity [Recovered/Resolved]
  - Off label use [Unknown]
  - Pruritus [Recovered/Resolved]
  - Rash pruritic [Recovered/Resolved]
  - Skin exfoliation [Recovered/Resolved]
  - Throat irritation [Recovered/Resolved]
